FAERS Safety Report 8429933-6 (Version None)
Quarter: 2012Q2

REPORT INFORMATION
  Report Type: 
  Country: None (occurrence: None)
  Receive Date: 20120323
  Receipt Date: 20111205
  Transmission Date: 20120825
  Serious: Yes (Hospitalization)
  Sender: FDA-Public Use
  Company Number: 163-21880-11120711

PATIENT
  Age: 76 Year
  Sex: Male
  Weight: 102.0593 kg

DRUGS (8)
  1. COLACE (DOCUSATE SODIUM) [Concomitant]
  2. REVLIMID [Suspect]
     Indication: MULTIPLE MYELOMA
     Dosage: 10 MG, QD X 28D, PO
     Route: 048
     Dates: start: 20111019
  3. EMEND [Concomitant]
  4. PANTOPRAZOLE [Concomitant]
  5. ASPIRIN [Concomitant]
  6. AZILECT [Concomitant]
  7. METOPROLOL TARTRATE [Concomitant]
  8. SIMVASTATIN [Concomitant]

REACTIONS (2)
  - DEHYDRATION [None]
  - DIZZINESS [None]
